FAERS Safety Report 5725039-5 (Version None)
Quarter: 2008Q2

REPORT INFORMATION
  Report Type: 
  Country: None (occurrence: None)
  Receive Date: 20080429
  Receipt Date: 20080414
  Transmission Date: 20081010
  Serious: Yes (Life-Threatening)
  Sender: FDA-Public Use
  Company Number: 2008S1006238

PATIENT
  Age: 72 Year
  Sex: Male

DRUGS (10)
  1. VERAPAMIL [Suspect]
     Indication: ATRIAL FIBRILLATION
     Dosage: 160 MG; DAILY;
     Dates: start: 20080328, end: 20080331
  2. ASPIRIN [Concomitant]
  3. DIGOXIN [Concomitant]
  4. ENOXAPARIN SODIUM [Concomitant]
  5. FELODIPINE [Concomitant]
  6. FUROSEMIDE [Concomitant]
  7. HUMULIN MG /00646001/ [Concomitant]
  8. ACETAMINOPHEN [Concomitant]
  9. SIMVASTATIN [Concomitant]
  10. TAMSULOSIN HCL [Concomitant]

REACTIONS (1)
  - ANGIOEDEMA [None]
